FAERS Safety Report 14502028 (Version 5)
Quarter: 2020Q1

REPORT INFORMATION
  Report Type: Spontaneous
  Country: CA (occurrence: CA)
  Receive Date: 20180208
  Receipt Date: 20200121
  Transmission Date: 20200409
  Serious: Yes (Other)
  Sender: FDA-Public Use
  Company Number: CA-ORION CORPORATION ORION PHARMA-TREX2016-0407

PATIENT
  Age: 58 Year
  Sex: Female

DRUGS (16)
  1. METHOTREXATE (TRADE NAME UNKNOWN) [Suspect]
     Active Substance: METHOTREXATE
     Route: 065
     Dates: start: 1998, end: 201805
  2. APO-DICLOFENAC [Suspect]
     Active Substance: DICLOFENAC
     Indication: PRODUCT USED FOR UNKNOWN INDICATION
     Route: 065
  3. LYRICA [Suspect]
     Active Substance: PREGABALIN
     Indication: RHEUMATOID ARTHRITIS
     Route: 048
     Dates: start: 201604
  4. ORENCIA [Suspect]
     Active Substance: ABATACEPT
     Indication: RHEUMATOID ARTHRITIS
     Route: 058
     Dates: start: 201409, end: 20150318
  5. DICLOFENAC [Suspect]
     Active Substance: DICLOFENAC
     Indication: RHEUMATOID ARTHRITIS
     Route: 065
     Dates: start: 2004
  6. GOLD W/IRON/POTASSIUM PHOSPHATE DIBASIC (HOMEOPATHIC) [Suspect]
     Active Substance: HOMEOPATHICS
     Indication: RHEUMATOID ARTHRITIS
     Route: 065
  7. XELJANZ [Suspect]
     Active Substance: TOFACITINIB CITRATE
     Indication: PRODUCT USED FOR UNKNOWN INDICATION
     Route: 065
  8. PREGABALIN. [Suspect]
     Active Substance: PREGABALIN
     Indication: PRODUCT USED FOR UNKNOWN INDICATION
     Route: 065
  9. GOLD (198 AU) [Suspect]
     Active Substance: GOLD AU-198
     Indication: RHEUMATOID ARTHRITIS
     Route: 065
  10. ACTEMRA [Suspect]
     Active Substance: TOCILIZUMAB
     Indication: RHEUMATOID ARTHRITIS
     Route: 042
     Dates: start: 201304, end: 201402
  11. ARAVA [Concomitant]
     Active Substance: LEFLUNOMIDE
     Route: 065
     Dates: start: 201805
  12. HUMIRA [Suspect]
     Active Substance: ADALIMUMAB
     Indication: RHEUMATOID ARTHRITIS
     Route: 058
     Dates: start: 2008
  13. APO-DICLO [Suspect]
     Active Substance: DICLOFENAC SODIUM
     Indication: PRODUCT USED FOR UNKNOWN INDICATION
     Route: 065
  14. METHOTREXATE (TRADE NAME UNKNOWN) [Suspect]
     Active Substance: METHOTREXATE
     Indication: RHEUMATOID ARTHRITIS
     Route: 065
     Dates: start: 1998, end: 1998
  15. RITUXAN [Suspect]
     Active Substance: RITUXIMAB
     Indication: RHEUMATOID ARTHRITIS
     Dosage: 2 CYCLES
     Route: 042
     Dates: start: 201505, end: 201512
  16. HUMIRA [Suspect]
     Active Substance: ADALIMUMAB
     Route: 058

REACTIONS (14)
  - Drug ineffective [Unknown]
  - Infection [Unknown]
  - Rash [Unknown]
  - Herpes zoster [Unknown]
  - Product use issue [Unknown]
  - Sleep disorder [Not Recovered/Not Resolved]
  - Treatment failure [Unknown]
  - Joint stiffness [Unknown]
  - Synovitis [Unknown]
  - Pain in extremity [Unknown]
  - Pain [Unknown]
  - Skin lesion [Unknown]
  - Rheumatoid arthritis [Not Recovered/Not Resolved]
  - Musculoskeletal stiffness [Unknown]

NARRATIVE: CASE EVENT DATE: 2016
